FAERS Safety Report 22294905 (Version 3)
Quarter: 2023Q2

REPORT INFORMATION
  Report Type: Report from Study
  Country: US (occurrence: US)
  Receive Date: 20230508
  Receipt Date: 20230601
  Transmission Date: 20230722
  Serious: Yes (Death, Life-Threatening, Hospitalization, Other)
  Sender: FDA-Public Use
  Company Number: US-PFIZER INC-PV202200101726

PATIENT
  Age: 74 Year
  Sex: Male
  Weight: 88.209 kg

DRUGS (41)
  1. CORTEF [Suspect]
     Active Substance: HYDROCORTISONE
     Indication: Adrenal insufficiency
     Dosage: UNK
     Route: 048
     Dates: start: 20221012
  2. ELIQUIS [Suspect]
     Active Substance: APIXABAN
     Indication: Deep vein thrombosis
     Dosage: 5 MG, BID
     Route: 048
  3. CABOMETYX [Suspect]
     Active Substance: CABOZANTINIB S-MALATE
     Indication: Renal cancer
     Dosage: 40 MG (TAKE 1 TABLET BY MOUTH ONCE DAILY FOR 3 WEEKS ON, 1 WEEK OFF)
     Route: 048
     Dates: start: 20210902, end: 20221002
  4. CABOMETYX [Suspect]
     Active Substance: CABOZANTINIB S-MALATE
     Indication: Papillary renal cell carcinoma
     Dosage: 40 MG, QD
     Route: 048
     Dates: start: 20210903, end: 20211027
  5. CABOMETYX [Suspect]
     Active Substance: CABOZANTINIB S-MALATE
     Dosage: 40 MG, QD
     Route: 048
     Dates: start: 20220323, end: 20220606
  6. CABOMETYX [Suspect]
     Active Substance: CABOZANTINIB S-MALATE
     Dosage: 40 MG DAILY (1 WEEK ON, 1 WEEK OFF)
     Route: 048
     Dates: start: 20220622
  7. CABOMETYX [Suspect]
     Active Substance: CABOZANTINIB S-MALATE
     Dosage: 40 MG (TAKE 1 TABLET BY MOUTH ONCE DAILY FOR 3 WEEKS ON, 1 WEEK OFF);
     Route: 048
     Dates: start: 20220720, end: 20220918
  8. CABOMETYX [Suspect]
     Active Substance: CABOZANTINIB S-MALATE
     Dosage: 40 MG (TAKE 1 TABLET BY MOUTH ONCE DAILY FOR 3 WEEKS ON, 1 WEEK OFF)
     Route: 048
     Dates: end: 20221002
  9. CABOMETYX [Suspect]
     Active Substance: CABOZANTINIB S-MALATE
     Dosage: 40 MG (TAKE 1 TABLET BY MOUTH ONCE DAILY FOR 3 WEEKS ON, 1 WEEK OFF)
     Route: 048
     Dates: start: 20221016, end: 202210
  10. CABOMETYX [Suspect]
     Active Substance: CABOZANTINIB S-MALATE
     Dosage: 40 MG (1 WEEK ON, 1 WEEK OFF)
     Route: 048
     Dates: start: 20230105, end: 20230413
  11. CABOMETYX [Suspect]
     Active Substance: CABOZANTINIB S-MALATE
     Dosage: 1 WEEK ON, 1 WEEK OFF
     Route: 048
     Dates: end: 20230413
  12. OPDIVO [Suspect]
     Active Substance: NIVOLUMAB
     Indication: Renal cancer
     Dosage: UNK
     Route: 065
     Dates: start: 20211013, end: 20220323
  13. OPDIVO [Suspect]
     Active Substance: NIVOLUMAB
     Dosage: 240 MG, Q2WEEKS;
     Route: 042
     Dates: start: 20220413, end: 20221019
  14. DOXAZOSIN [Concomitant]
     Active Substance: DOXAZOSIN MESYLATE
     Dosage: UNK
  15. DOXAZOSIN [Concomitant]
     Active Substance: DOXAZOSIN MESYLATE
     Dosage: UNK
  16. HYDROCORTISONE [Concomitant]
     Active Substance: HYDROCORTISONE
     Indication: Hypothyroidism
     Dosage: UNK
  17. IRON [Concomitant]
     Active Substance: IRON
     Dosage: UNK
  18. TRAMADOL [Concomitant]
     Active Substance: TRAMADOL
     Indication: Pain
     Dosage: UNK
  19. TRAMADOL [Concomitant]
     Active Substance: TRAMADOL
     Dosage: UNK
  20. FERROUS SULFATE [Concomitant]
     Active Substance: FERROUS SULFATE
     Dosage: UNK
  21. FINASTERIDE [Concomitant]
     Active Substance: FINASTERIDE
     Dosage: UNK
  22. FOLIC ACID [Concomitant]
     Active Substance: FOLIC ACID
     Dosage: UNK
  23. SOLU-CORTEF [Concomitant]
     Active Substance: HYDROCORTISONE SODIUM SUCCINATE
     Dosage: UNK
  24. LEVOTHYROXINE [Concomitant]
     Active Substance: LEVOTHYROXINE
     Dosage: UNK
  25. MAGNESIUM OXIDE [Concomitant]
     Active Substance: MAGNESIUM OXIDE
     Dosage: UNK
  26. VITAMINS [Concomitant]
     Active Substance: VITAMINS
     Dosage: UNK
  27. BUMETANIDE [Concomitant]
     Active Substance: BUMETANIDE
     Dosage: UNK
  28. ACETAMINOPHEN\HYDROCODONE [Concomitant]
     Active Substance: ACETAMINOPHEN\HYDROCODONE
     Dosage: UNK
  29. ALLOPURINOL [Concomitant]
     Active Substance: ALLOPURINOL
     Dosage: UNK
  30. ASPIRIN [Concomitant]
     Active Substance: ASPIRIN
     Dosage: UNK
  31. VITAMIN D3 [Concomitant]
     Active Substance: CHOLECALCIFEROL
     Dosage: UNK
  32. VITAMIN B12 [Concomitant]
     Active Substance: CYANOCOBALAMIN
     Dosage: UNK
  33. POTASSIUM CHLORIDE [Concomitant]
     Active Substance: POTASSIUM CHLORIDE
     Dosage: UNK
  34. CALMOSEPTINE [MENTHOL;ZINC OXIDE] [Concomitant]
     Dosage: UNK
  35. CLOBETASOL [Concomitant]
     Active Substance: CLOBETASOL
     Dosage: UNK
  36. ATROPINE\DIPHENOXYLATE [Concomitant]
     Active Substance: ATROPINE\DIPHENOXYLATE
     Dosage: UNK
  37. LOMOTIL [Concomitant]
     Active Substance: ATROPINE SULFATE\DIPHENOXYLATE HYDROCHLORIDE
     Dosage: UNK
  38. MAGNESIUM [Concomitant]
     Active Substance: MAGNESIUM
     Dosage: UNK
  39. METOLAZONE [Concomitant]
     Active Substance: METOLAZONE
     Dosage: UNK
  40. ONDANSETRON [Concomitant]
     Active Substance: ONDANSETRON
     Dosage: UNK
  41. TYLENOL [Concomitant]
     Active Substance: ACETAMINOPHEN
     Dosage: UNK

REACTIONS (34)
  - Malignant neoplasm progression [Fatal]
  - Septic shock [Unknown]
  - Postoperative abscess [Unknown]
  - Generalised oedema [Recovering/Resolving]
  - Large intestine perforation [Unknown]
  - Renal cyst ruptured [Unknown]
  - Intestinal obstruction [Unknown]
  - Intestinal perforation [Unknown]
  - Post procedural complication [Unknown]
  - Deep vein thrombosis [Recovering/Resolving]
  - Renal failure [Unknown]
  - Diverticulum intestinal [Unknown]
  - Cardiac failure acute [Unknown]
  - Rectal haemorrhage [Recovering/Resolving]
  - Haematuria [Recovering/Resolving]
  - Epistaxis [Recovering/Resolving]
  - Metastases to lymph nodes [Unknown]
  - Metastases to abdominal cavity [Unknown]
  - Metastases to soft tissue [Unknown]
  - Adrenal insufficiency [Unknown]
  - Hypothyroidism [Unknown]
  - Abdominal distension [Unknown]
  - Hernia [Unknown]
  - Blood pressure systolic increased [Recovered/Resolved]
  - Drug intolerance [Unknown]
  - Insomnia [Unknown]
  - White blood cell disorder [Unknown]
  - Dehydration [Unknown]
  - Weight decreased [Unknown]
  - Night sweats [Recovered/Resolved]
  - Adrenal disorder [Unknown]
  - Monoclonal gammopathy [Unknown]
  - Gastrooesophageal reflux disease [Unknown]
  - Anaemia [Unknown]

NARRATIVE: CASE EVENT DATE: 20220404
